FAERS Safety Report 22370245 (Version 1)
Quarter: 2023Q2

REPORT INFORMATION
  Report Type: Spontaneous
  Country: US (occurrence: US)
  Receive Date: 20230526
  Receipt Date: 20230526
  Transmission Date: 20230721
  Serious: Yes (Other)
  Sender: FDA-Public Use
  Company Number: US-NOVEN PHARMACEUTICALS, INC.-2023-NOV-US000523

PATIENT
  Age: 27 Year
  Sex: Female

DRUGS (2)
  1. ESTRADIOL [Suspect]
     Active Substance: ESTRADIOL
     Indication: Transgender hormonal therapy
     Dosage: UNKNOWN
     Route: 065
  2. CYPROTERONE ACETATE [Suspect]
     Active Substance: CYPROTERONE ACETATE
     Indication: Transgender hormonal therapy
     Dosage: UNKNOWN
     Route: 065

REACTIONS (4)
  - Drug-induced liver injury [Recovered/Resolved]
  - Acute hepatic failure [Recovered/Resolved]
  - Self-medication [Recovered/Resolved]
  - Product use in unapproved indication [Recovered/Resolved]
